FAERS Safety Report 7364905-4 (Version None)
Quarter: 2011Q1

REPORT INFORMATION
  Report Type: 
  Country: None (occurrence: None)
  Receive Date: 20110321
  Receipt Date: 20110315
  Transmission Date: 20110831
  Serious: Yes (Death)
  Sender: FDA-Public Use
  Company Number: TN-ASTRAZENECA-2011SE15008

PATIENT
  Age: 68 Year
  Sex: Female

DRUGS (1)
  1. TAMOXIFEN CITRATE [Suspect]
     Indication: BREAST CANCER
     Dosage: 1 ODD ORAL
     Route: 048
     Dates: start: 20040101

REACTIONS (1)
  - ENDOMETRIAL CANCER [None]
